FAERS Safety Report 8237171-5 (Version None)
Quarter: 2012Q1

REPORT INFORMATION
  Report Type: 
  Country: None (occurrence: None)
  Receive Date: 20120327
  Receipt Date: 20120322
  Transmission Date: 20120608
  Serious: Yes (Hospitalization, Other)
  Sender: FDA-Public Use
  Company Number: US-BAYER-201029086NA

PATIENT
  Age: 61 Year
  Sex: Male
  Weight: 78.005 kg

DRUGS (24)
  1. TRASYLOL [Suspect]
     Indication: CORONARY ARTERY BYPASS
     Dosage: 3 ML, ANEASTHESIA
     Route: 042
     Dates: start: 20000815, end: 20000815
  2. HEPARIN [Concomitant]
     Dosage: 40 ML
     Route: 042
     Dates: start: 20000815, end: 20000815
  3. ZINACEF [Concomitant]
     Dosage: 1.5 G, UNK
     Route: 042
  4. LASIX [Concomitant]
     Dosage: 40 MG, CARDIOPULMONARY BYPASS
     Dates: start: 20000815, end: 20000815
  5. INSULIN [Concomitant]
     Dosage: 22 UNITS DAILY
  6. RED BLOOD CELLS [Concomitant]
     Dosage: 2 U, UNK
     Dates: start: 20000815, end: 20000815
  7. ALBUMIN (HUMAN) [Concomitant]
     Dosage: 25 G, CARDIOPULMONARY BYPASS
     Dates: start: 20000815, end: 20000815
  8. COZAAR [Concomitant]
     Dosage: 50MG DAILY
  9. NORVASC [Concomitant]
     Dosage: 5MG DAILY
  10. AVAPRO [Concomitant]
     Dosage: 150MG DAILY
  11. MANNITOL [Concomitant]
     Dosage: 62.5 GM CARDIPULMONARY BYPASS
     Dates: start: 20000815, end: 20000815
  12. NITROGLYCERIN [Concomitant]
     Dosage: UNK
     Route: 042
     Dates: start: 20000809
  13. TRASYLOL [Suspect]
     Dosage: 100 ML, CARDIOPULMONARY BYPASS PRIME
     Dates: start: 20000815, end: 20000815
  14. HEPARIN [Concomitant]
     Dosage: 10000 U, CARDIOPULMONARY BYPASS
     Dates: start: 20000815, end: 20000815
  15. TRASYLOL [Suspect]
     Dosage: 200 ML, LOADING DOSE
     Route: 042
     Dates: start: 20000815, end: 20000815
  16. LASIX [Concomitant]
     Dosage: UNK
     Route: 042
     Dates: start: 20000813
  17. ZESTRIL [Concomitant]
     Dosage: 15MG DAILY
  18. ACE INHIBITOR NOS [Concomitant]
     Dosage: SINCE 1995
     Dates: start: 19950101
  19. TRASYLOL [Suspect]
     Dosage: 50 CC/HOUR
     Route: 042
     Dates: start: 20000815, end: 20000815
  20. LEVAQUIN [Concomitant]
     Dosage: UNK UNK, BID
     Dates: start: 20000809
  21. ASPIRIN [Concomitant]
     Dosage: 5GR DAILY
  22. LIPITOR [Concomitant]
     Dosage: 30MG DAILY
  23. ZETIA [Concomitant]
     Indication: PROPHYLAXIS AGAINST TRANSPLANT REJECTION
     Dosage: UNK
     Dates: start: 20090715
  24. CONTRAST MEDIA [Concomitant]
     Indication: CATHETERISATION CARDIAC
     Dosage: PRIOR TO SURGERY AMOUNT NOT REPORTED
     Dates: start: 20000815, end: 20000815

REACTIONS (10)
  - PAIN [None]
  - INJURY [None]
  - MULTI-ORGAN FAILURE [None]
  - RENAL IMPAIRMENT [None]
  - RENAL INJURY [None]
  - STRESS [None]
  - RENAL FAILURE [None]
  - FEAR [None]
  - ANXIETY [None]
  - UNEVALUABLE EVENT [None]
